FAERS Safety Report 21434513 (Version 1)
Quarter: 2022Q4

REPORT INFORMATION
  Report Type: Spontaneous
  Country: US (occurrence: US)
  Receive Date: 20221010
  Receipt Date: 20221010
  Transmission Date: 20230113
  Serious: No
  Sender: FDA-Public Use
  Company Number: US-NEBO-PC009159

PATIENT
  Age: 23 Year
  Sex: Female

DRUGS (3)
  1. MONOFERRIC [Suspect]
     Active Substance: FERRIC DERISOMALTOSE
     Indication: Iron deficiency anaemia
     Dates: start: 20220623, end: 20220623
  2. TYLENOL [Concomitant]
     Active Substance: ACETAMINOPHEN
     Indication: Premedication
     Route: 050
     Dates: start: 20220623, end: 20220623
  3. ZOFRAN [Concomitant]
     Active Substance: ONDANSETRON HYDROCHLORIDE
     Indication: Premedication
     Route: 050
     Dates: start: 20220623, end: 20220623

REACTIONS (2)
  - Headache [Recovered/Resolved]
  - Similar reaction on previous exposure to drug [Recovered/Resolved]

NARRATIVE: CASE EVENT DATE: 20220624
